FAERS Safety Report 17299785 (Version 1)
Quarter: 2020Q1

REPORT INFORMATION
  Report Type: Spontaneous
  Country: US (occurrence: US)
  Receive Date: 20200121
  Receipt Date: 20200121
  Transmission Date: 20200409
  Serious: Yes (Death)
  Sender: FDA-Public Use
  Company Number: None

PATIENT
  Age: 86 Year
  Sex: Male

DRUGS (11)
  1. REPAGLINDINE [Concomitant]
  2. LOSARTAN. [Concomitant]
     Active Substance: LOSARTAN
  3. ADVAIR HFA [Concomitant]
     Active Substance: FLUTICASONE PROPIONATE\SALMETEROL XINAFOATE
  4. QUETIAPINE. [Concomitant]
     Active Substance: QUETIAPINE
  5. TAMSULOSIN [Concomitant]
     Active Substance: TAMSULOSIN
  6. LEVOTHYROXIN [Concomitant]
     Active Substance: LEVOTHYROXINE
  7. ONETOUCH [Concomitant]
  8. ONGLYZA [Concomitant]
     Active Substance: SAXAGLIPTIN HYDROCHLORIDE
  9. DONEPEZIL. [Concomitant]
     Active Substance: DONEPEZIL
  10. FUROSEMIDE. [Concomitant]
     Active Substance: FUROSEMIDE
  11. REPATHA [Suspect]
     Active Substance: EVOLOCUMAB
     Indication: URINARY TRACT INFECTION
     Dosage: ?          OTHER FREQUENCY:Q EVERY 21 DAYS;?
     Route: 058
     Dates: start: 20190115

REACTIONS (1)
  - Death [None]
